FAERS Safety Report 7799138-0 (Version None)
Quarter: 2011Q4

REPORT INFORMATION
  Report Type: 
  Country: None (occurrence: None)
  Receive Date: 20111006
  Receipt Date: 20110930
  Transmission Date: 20120403
  Serious: Yes (Other)
  Sender: FDA-Public Use
  Company Number: US-PFIZER INC-2011234275

PATIENT
  Sex: Female

DRUGS (3)
  1. LYRICA [Suspect]
     Indication: BACK INJURY
     Dosage: 50 MG, 2X/DAY
     Route: 048
  2. LYRICA [Suspect]
     Indication: JOINT INJURY
  3. LYRICA [Suspect]
     Indication: NECK INJURY
     Dosage: 50 MG IN THE MORNING, 100 MG AT BEDTIME
     Route: 048

REACTIONS (5)
  - MALAISE [None]
  - CHRONIC OBSTRUCTIVE PULMONARY DISEASE [None]
  - JOINT SWELLING [None]
  - PAIN [None]
  - SKIN LESION [None]
